FAERS Safety Report 10025599 (Version 1)
Quarter: 2014Q1

REPORT INFORMATION
  Report Type: Spontaneous
  Country: US (occurrence: None)
  Receive Date: 20140318
  Receipt Date: 20140318
  Transmission Date: 20141002
  Serious: Yes (Hospitalization)
  Sender: FDA-Public Use
  Company Number: AUR-APL-2014-02932

PATIENT
  Age: 21 Year
  Sex: Female

DRUGS (5)
  1. ESCITALOPRAM (ESCITALOPRAM) [Suspect]
     Indication: PRODUCT USED FOR UNKNOWN INDICATION
  2. OXYCODONE + PARACETAMOL (PARACETAMOL, OXYCODONE) [Suspect]
     Indication: MIGRAINE
     Dosage: 1 DOSAGE FORM 4 IN 1 D
  3. CYCLOBENZAPRINE (CYCLOBENZAPRINE) [Suspect]
     Indication: MIGRAINE
     Dosage: 10 MG  3 IN 1 D
  4. CELECOXIB (CELECOXIB) [Suspect]
     Indication: PRODUCT USED FOR UNKNOWN INDICATION
     Dosage: 200 MG 2 IN 1 D
  5. DIAZEPAM (DIAZEPAM) [Suspect]

REACTIONS (8)
  - Drug ineffective [None]
  - Depressed mood [None]
  - Anhedonia [None]
  - Poor quality sleep [None]
  - Fatigue [None]
  - Feeling guilty [None]
  - Suicidal ideation [None]
  - Disturbance in attention [None]
